FAERS Safety Report 9279102 (Version 3)
Quarter: 2013Q2

REPORT INFORMATION
  Report Type: Spontaneous
  Country: US (occurrence: US)
  Receive Date: 20130508
  Receipt Date: 20130604
  Transmission Date: 20140414
  Serious: Yes (Other)
  Sender: FDA-Public Use
  Company Number: US-TEVA-401017USA

PATIENT
  Age: 51 Year
  Sex: Female
  Weight: 108.96 kg

DRUGS (3)
  1. AZITHROMYCIN [Suspect]
     Indication: SINUSITIS
     Dates: start: 20121127, end: 20121203
  2. METFORMIN [Concomitant]
     Indication: TYPE 2 DIABETES MELLITUS
     Dosage: 500 MILLIGRAM DAILY;
     Route: 048
     Dates: start: 2011
  3. TRIAMTERENE [Concomitant]
     Indication: HYPERTENSION
     Dosage: 37.5 MILLIGRAM DAILY;
     Route: 048
     Dates: start: 2009

REACTIONS (7)
  - Hypertension [Recovering/Resolving]
  - Sinus bradycardia [Unknown]
  - Ventricular hypertrophy [Unknown]
  - Electrocardiogram T wave abnormal [Unknown]
  - Fatigue [Unknown]
  - Asthenia [Unknown]
  - Cardiac disorder [Unknown]
